FAERS Safety Report 6215221-5 (Version None)
Quarter: 2009Q2

REPORT INFORMATION
  Report Type: 
  Country: None (occurrence: None)
  Receive Date: 20090604
  Receipt Date: 20090527
  Transmission Date: 20091009
  Serious: Yes (Other)
  Sender: FDA-Public Use
  Company Number: US-NOVOPROD-286104

PATIENT
  Age: 16 Year
  Sex: Male
  Weight: 63.946 kg

DRUGS (2)
  1. NORDITROPIN [Suspect]
     Indication: GROWTH HORMONE DEFICIENCY
     Dosage: 2.3 MG, QD
     Route: 058
     Dates: start: 20060101
  2. NORDITROPIN [Suspect]
     Dosage: 3.7 MG, QD
     Route: 058

REACTIONS (2)
  - HYPERPLASIA [None]
  - MELANOCYTIC NAEVUS [None]
